FAERS Safety Report 10442511 (Version 1)
Quarter: 2014Q3

REPORT INFORMATION
  Report Type: Report from Study
  Country: JP (occurrence: JP)
  Receive Date: 20140909
  Receipt Date: 20140909
  Transmission Date: 20150326
  Serious: Yes (Death)
  Sender: FDA-Public Use
  Company Number: PHHY2011JP122711

PATIENT
  Age: 78 Year
  Sex: Male
  Weight: 30 kg

DRUGS (1)
  1. ICL670A [Suspect]
     Active Substance: DEFERASIROX
     Indication: MYELODYSPLASTIC SYNDROME
     Dosage: 750 MG, DAILY
     Dates: start: 20081101

REACTIONS (1)
  - Death [Fatal]

NARRATIVE: CASE EVENT DATE: 20090312
